FAERS Safety Report 4729549-9 (Version None)
Quarter: 2005Q3

REPORT INFORMATION
  Report Type: 
  Country: None (occurrence: None)
  Receive Date: 20050801
  Receipt Date: 20050711
  Transmission Date: 20060218
  Serious: Yes (Hospitalization)
  Sender: FDA-Public Use
  Company Number: DE-MERCK-0507DEU00078

PATIENT
  Age: 12 Month
  Sex: Male
  Weight: 10 kg

DRUGS (3)
  1. SINGULAIR [Suspect]
     Indication: BRONCHITIS CHRONIC
     Route: 048
     Dates: start: 20050630, end: 20050704
  2. CEFACLOR [Suspect]
     Indication: PNEUMONIA
     Route: 048
     Dates: start: 20050702, end: 20050710
  3. SODIUM CHLORIDE [Suspect]
     Indication: BRONCHITIS
     Route: 055
     Dates: start: 20050630, end: 20050713

REACTIONS (4)
  - ANAEMIA [None]
  - HAEMATEMESIS [None]
  - INJURY [None]
  - PNEUMONIA [None]
